FAERS Safety Report 4860940-6 (Version None)
Quarter: 2005Q4

REPORT INFORMATION
  Report Type: 
  Country: None (occurrence: None)
  Receive Date: 20051220
  Receipt Date: 20051209
  Transmission Date: 20060501
  Serious: Yes (Other)
  Sender: FDA-Public Use
  Company Number: CA-BRISTOL-MYERS SQUIBB COMPANY-13220215

PATIENT
  Age: 80 Year
  Sex: Male

DRUGS (9)
  1. TEQUIN [Suspect]
     Route: 048
  2. ATROVENT [Concomitant]
  3. ASPIRIN [Concomitant]
     Route: 048
  4. GLYBURIDE [Concomitant]
  5. INSULIN [Concomitant]
  6. LASIX [Concomitant]
  7. NITROGLYCERIN [Concomitant]
  8. PLAVIX [Concomitant]
     Route: 048
  9. VENTOLIN [Concomitant]

REACTIONS (3)
  - ASTHENIA [None]
  - HYPERHIDROSIS [None]
  - HYPOGLYCAEMIA [None]
